FAERS Safety Report 4422821-1 (Version None)
Quarter: 2004Q3

REPORT INFORMATION
  Report Type: 
  Country: None (occurrence: None)
  Receive Date: 20040811
  Receipt Date: 20040802
  Transmission Date: 20050211
  Serious: Yes (Hospitalization, Other)
  Sender: FDA-Public Use
  Company Number: 200415883US

PATIENT
  Sex: Female
  Weight: 114.5 kg

DRUGS (13)
  1. ARAVA [Suspect]
     Indication: PSORIATIC ARTHROPATHY
     Route: 048
     Dates: start: 20021016, end: 20021217
  2. METHOTREXATE [Suspect]
     Indication: PSORIATIC ARTHROPATHY
     Dosage: DOSE: UNK
     Dates: start: 20021101, end: 20021201
  3. METHOTREXATE [Concomitant]
  4. SKELAXIN [Concomitant]
     Dates: start: 20010928
  5. PREDNISONE [Concomitant]
  6. FOLIC ACID [Concomitant]
  7. AMBIEN [Concomitant]
  8. ELAVIL [Concomitant]
  9. DARVOCET-N 100 [Concomitant]
  10. LITHIUM [Concomitant]
  11. FOSAMAX [Concomitant]
  12. KLONOPIN [Concomitant]
  13. PREVACID [Concomitant]

REACTIONS (15)
  - ALANINE AMINOTRANSFERASE INCREASED [None]
  - ASPARTATE AMINOTRANSFERASE INCREASED [None]
  - BLOOD ALBUMIN DECREASED [None]
  - BLOOD ALKALINE PHOSPHATASE INCREASED [None]
  - BONE MARROW TOXICITY [None]
  - DYSPHAGIA [None]
  - ERYTHEMA MULTIFORME [None]
  - FAECAL OCCULT BLOOD POSITIVE [None]
  - GASTROINTESTINAL HAEMORRHAGE [None]
  - MUCOSAL ULCERATION [None]
  - NEUTROPENIA [None]
  - PANCYTOPENIA [None]
  - PHARYNGOLARYNGEAL PAIN [None]
  - PYREXIA [None]
  - RASH [None]
